FAERS Safety Report 10471083 (Version 1)
Quarter: 2014Q3

REPORT INFORMATION
  Report Type: Spontaneous
  Country: CH (occurrence: CH)
  Receive Date: 20140923
  Receipt Date: 20140923
  Transmission Date: 20150326
  Serious: Yes (Other)
  Sender: FDA-Public Use
  Company Number: PHHY2014CH117433

PATIENT
  Age: 82 Year
  Sex: Female

DRUGS (11)
  1. COMBIVIR [Interacting]
     Active Substance: LAMIVUDINE\ZIDOVUDINE
     Dosage: 1 DF, BID (AT 05:30 AND 13:30)
     Route: 048
     Dates: start: 1998
  2. ATORVASTATIN [Concomitant]
     Active Substance: ATORVASTATIN
     Dosage: 20 MG, QD IN EVENING
     Route: 048
  3. DILATREND [Concomitant]
     Active Substance: CARVEDILOL
     Dosage: 12.5 MG, BID (IN MORNING AND EVENING )
  4. ROHYPNOL [Concomitant]
     Active Substance: FLUNITRAZEPAM
     Dosage: 0.5 MG, AT BEDTIME AS REQUIRED
     Route: 048
  5. SERESTA [Concomitant]
     Active Substance: OXAZEPAM
     Dosage: 25 MG, QD IN EVENING AS REQUIRED
  6. RASILEZ HCT [Suspect]
     Active Substance: ALISKIREN\HYDROCHLOROTHIAZIDE
     Dosage: 1 DF, QD
     Route: 048
     Dates: end: 20140720
  7. AMLODIPINE [Concomitant]
     Active Substance: AMLODIPINE BESYLATE
     Dosage: 10 MG, QD IN MORNING
  8. ENALAPRIL [Concomitant]
     Active Substance: ENALAPRIL
     Dosage: 15 MG, BID (IN MORNING AND EVENING)
     Route: 048
  9. TOREM [Interacting]
     Active Substance: TORSEMIDE
     Dosage: 2 MG, QD
     Route: 048
     Dates: end: 20140720
  10. PREZISTA [Interacting]
     Active Substance: DARUNAVIR ETHANOLATE
     Dosage: 800 MG, QD IN EVENING
     Route: 048
     Dates: start: 201401
  11. NORVIR [Interacting]
     Active Substance: RITONAVIR
     Dosage: 100 MG, QD IN EVENING
     Route: 048
     Dates: start: 1998

REACTIONS (3)
  - Hyponatraemia [Recovered/Resolved]
  - Hypokalaemia [Recovered/Resolved]
  - Electrocardiogram QT prolonged [Unknown]

NARRATIVE: CASE EVENT DATE: 20140720
